FAERS Safety Report 9790002 (Version 1)
Quarter: 2013Q4

REPORT INFORMATION
  Report Type: Spontaneous
  Country: US (occurrence: None)
  Receive Date: 20131230
  Receipt Date: 20131230
  Transmission Date: 20140711
  Serious: Yes (Disabling)
  Sender: FDA-Public Use
  Company Number: None

PATIENT
  Age: 52 Year
  Sex: Male
  Weight: 81.65 kg

DRUGS (1)
  1. CIPROFLOXACIN [Suspect]
     Indication: COLITIS
     Dosage: 1 TABLET
     Route: 048
     Dates: start: 20060501, end: 20130511

REACTIONS (7)
  - Local swelling [None]
  - Muscle spasms [None]
  - Back pain [None]
  - Rheumatoid arthritis [None]
  - Pain in extremity [None]
  - Arthralgia [None]
  - Musculoskeletal pain [None]
